FAERS Safety Report 10412229 (Version 2)
Quarter: 2014Q3

REPORT INFORMATION
  Report Type: Report from Study
  Country: US (occurrence: US)
  Receive Date: 20140827
  Receipt Date: 20140911
  Transmission Date: 20150326
  Serious: Yes (Hospitalization, Other)
  Sender: FDA-Public Use
  Company Number: US-BAYER-2014-124699

PATIENT
  Age: 60 Year
  Sex: Male
  Weight: 68.27 kg

DRUGS (11)
  1. FLOMAX [Concomitant]
     Active Substance: TAMSULOSIN HYDROCHLORIDE
     Dosage: UNK
  2. FUROSEMIDE. [Concomitant]
     Active Substance: FUROSEMIDE
  3. NEXAVAR [Suspect]
     Active Substance: SORAFENIB
     Indication: HEPATIC CANCER
     Dosage: 400 MG, BID
     Route: 048
     Dates: start: 20140730
  4. JANUVIA [Concomitant]
     Active Substance: SITAGLIPTIN PHOSPHATE
  5. GLIPIZIDE ER [Concomitant]
     Active Substance: GLIPIZIDE
     Dosage: UNK
  6. OMEPRAZOLE. [Concomitant]
     Active Substance: OMEPRAZOLE
     Dosage: UNK
  7. HYDROMORPHONE [Concomitant]
     Active Substance: HYDROMORPHONE
     Dosage: UNK
  8. PROCHLORPERAZINE. [Concomitant]
     Active Substance: PROCHLORPERAZINE
  9. SPIRONOLACTONE. [Concomitant]
     Active Substance: SPIRONOLACTONE
  10. LOVENOX [Concomitant]
     Active Substance: ENOXAPARIN SODIUM
  11. PROPRANOLOL [Concomitant]
     Active Substance: PROPRANOLOL\PROPRANOLOL HYDROCHLORIDE

REACTIONS (8)
  - Aphagia [None]
  - Fluid intake reduced [None]
  - Haematemesis [Unknown]
  - Abdominal pain upper [None]
  - Abnormal loss of weight [None]
  - Vomiting [None]
  - Hospitalisation [Unknown]
  - Weight decreased [Unknown]
